FAERS Safety Report 16565704 (Version 1)
Quarter: 2019Q3

REPORT INFORMATION
  Report Type: Spontaneous
  Country: US (occurrence: US)
  Receive Date: 20190712
  Receipt Date: 20190712
  Transmission Date: 20191004
  Serious: No
  Sender: FDA-Public Use
  Company Number: US-PFIZER INC-2019296031

PATIENT
  Age: 64 Year
  Sex: Male
  Weight: 121.54 kg

DRUGS (1)
  1. PREGABALIN. [Suspect]
     Active Substance: PREGABALIN
     Dosage: UNK UNK, 3X/DAY
     Route: 048

REACTIONS (3)
  - Drug ineffective [Unknown]
  - Dizziness [Unknown]
  - Blood pressure decreased [Unknown]
